FAERS Safety Report 11574502 (Version 1)
Quarter: 2015Q3

REPORT INFORMATION
  Report Type: Spontaneous
  Country: US (occurrence: None)
  Receive Date: 20150928
  Receipt Date: 20150928
  Transmission Date: 20151125
  Serious: No
  Sender: FDA-Public Use
  Company Number: None

PATIENT
  Age: 26 Year

DRUGS (2)
  1. VENTOLIN [Concomitant]
     Active Substance: ALBUTEROL SULFATE
  2. NEXPLANON [Suspect]
     Active Substance: ETONOGESTREL

REACTIONS (3)
  - Dyshidrotic eczema [None]
  - Fibromyalgia [None]
  - Carpal tunnel syndrome [None]

NARRATIVE: CASE EVENT DATE: 20150923
